FAERS Safety Report 6531186-0 (Version None)
Quarter: 2010Q1

REPORT INFORMATION
  Report Type: 
  Country: None (occurrence: None)
  Receive Date: 20100108
  Receipt Date: 20100104
  Transmission Date: 20100710
  Serious: Yes (Hospitalization)
  Sender: FDA-Public Use
  Company Number: KR-ROCHE-677761

PATIENT
  Sex: Male
  Weight: 57 kg

DRUGS (10)
  1. METHOXY POLYETHYLENE GLYCOL-EPOETIN BETA [Suspect]
     Dosage: DOSE FORM: PFS, LAST DOSE PRIOR TO EVENT: 03 DECEMBER 2009.
     Route: 058
     Dates: start: 20090903
  2. INSULIN GLARGINE [Concomitant]
     Dates: start: 20090709
  3. VALSARTAN [Concomitant]
     Dates: start: 20090508
  4. FLUVASTATIN [Concomitant]
     Dates: start: 20090709
  5. CARVEDILOL [Concomitant]
     Dates: start: 20090709
  6. ASPIRIN [Concomitant]
     Dates: start: 20090526
  7. CALCIUM CARBONATE [Concomitant]
     Dates: start: 20090611
  8. VITAMIN B COMPLEX CAP [Concomitant]
     Dates: start: 20090611
  9. FUROSEMIDE [Concomitant]
     Dates: start: 20090508
  10. FERROUS SULFATE TAB [Concomitant]
     Dates: start: 20090611

REACTIONS (1)
  - GENERALISED OEDEMA [None]
